FAERS Safety Report 21503836 (Version 1)
Quarter: 2022Q4

REPORT INFORMATION
  Report Type: Spontaneous
  Country: US (occurrence: None)
  Receive Date: 20221025
  Receipt Date: 20221025
  Transmission Date: 20230113
  Serious: Yes (Hospitalization)
  Sender: FDA-Public Use
  Company Number: None

PATIENT
  Sex: Female
  Weight: 39.6 kg

DRUGS (6)
  1. CYTARABINE [Suspect]
     Active Substance: CYTARABINE
     Dates: end: 20220920
  2. DAUNORUBICIN [Suspect]
     Active Substance: DAUNORUBICIN
     Dates: end: 20221005
  3. METHOTREXATE [Suspect]
     Active Substance: METHOTREXATE
     Dates: end: 20220928
  4. ONCASPAR [Suspect]
     Active Substance: PEGASPARGASE
     Dates: end: 20220924
  5. PREDNISOLONE [Suspect]
     Active Substance: PREDNISOLONE
     Dates: end: 20220712
  6. VINCRISTINE SULFATE [Suspect]
     Active Substance: VINCRISTINE SULFATE
     Dates: end: 20221005

REACTIONS (35)
  - Pain in extremity [None]
  - Pain in extremity [None]
  - Asthenia [None]
  - Heart rate increased [None]
  - Respiratory rate increased [None]
  - Klebsiella test positive [None]
  - Klebsiella test positive [None]
  - Hyponatraemia [None]
  - Hypoglycaemia [None]
  - Oedema peripheral [None]
  - Paraesthesia [None]
  - Rhabdomyolysis [None]
  - Myositis [None]
  - Sepsis [None]
  - Dehydration [None]
  - Haemoglobin decreased [None]
  - Blood creatine phosphokinase increased [None]
  - Aspartate aminotransferase increased [None]
  - Alanine aminotransferase increased [None]
  - Colitis [None]
  - Therapy interrupted [None]
  - Pallor [None]
  - Muscle necrosis [None]
  - Peripheral artery occlusion [None]
  - Pelvic organ prolapse [None]
  - Peripheral artery occlusion [None]
  - Pain in extremity [None]
  - Gait disturbance [None]
  - Blood bilirubin increased [None]
  - Feeling cold [None]
  - Thrombocytopenia [None]
  - Pulse absent [None]
  - Leg amputation [None]
  - Gallbladder enlargement [None]
  - Cholelithiasis [None]

NARRATIVE: CASE EVENT DATE: 20221014
